FAERS Safety Report 8900733 (Version 1)
Quarter: 2012Q4

REPORT INFORMATION
  Report Type: 
  Country: IT (occurrence: IT)
  Receive Date: 20121109
  Receipt Date: 20121109
  Transmission Date: 20130627
  Serious: Yes (Life-Threatening)
  Sender: FDA-Public Use
  Company Number: IT-MYLANLABS-2012S1022510

PATIENT
  Age: 77 Year
  Sex: Female

DRUGS (6)
  1. METFORMIN [Suspect]
     Indication: DIABETES MELLITUS
     Route: 048
     Dates: start: 19970101, end: 20121015
  2. LOSAZID [Concomitant]
     Indication: PRODUCT USED FOR UNKNOWN INDICATION
  3. TORVAST [Concomitant]
     Indication: PRODUCT USED FOR UNKNOWN INDICATION
  4. ANTRA /00661201/ [Concomitant]
     Indication: PRODUCT USED FOR UNKNOWN INDICATION
  5. CARDIOASPIRIN [Concomitant]
     Indication: PRODUCT USED FOR UNKNOWN INDICATION
     Dates: start: 20120713
  6. LANOXIN [Concomitant]
     Indication: PRODUCT USED FOR UNKNOWN INDICATION
     Dates: start: 20120714

REACTIONS (3)
  - Coma [Unknown]
  - Lactic acidosis [Unknown]
  - Medication error [Unknown]
